FAERS Safety Report 5514234-6 (Version None)
Quarter: 2007Q4

REPORT INFORMATION
  Report Type: 
  Country: None (occurrence: None)
  Receive Date: 20071031
  Receipt Date: 20070627
  Transmission Date: 20080405
  Serious: Yes (Other)
  Sender: FDA-Public Use
  Company Number: US020420

PATIENT
  Sex: Female
  Weight: 77.1115 kg

DRUGS (7)
  1. PROVIGIL [Suspect]
     Indication: DEPRESSION
     Dosage: 200 MG QD ORAL
     Route: 048
     Dates: start: 20050901, end: 20060701
  2. PROVIGIL [Suspect]
     Indication: FATIGUE
     Dosage: 200 MG QD ORAL
     Route: 048
     Dates: start: 20050901, end: 20060701
  3. PROVIGIL [Suspect]
     Indication: HYPERSENSITIVITY
     Dosage: 200 MG QD ORAL
     Route: 048
     Dates: start: 20050901, end: 20060701
  4. PROVIGIL [Suspect]
     Indication: DEPRESSION
     Dosage: 200 MG QD ORAL
     Route: 048
     Dates: start: 20060701
  5. PROVIGIL [Suspect]
     Indication: FATIGUE
     Dosage: 200 MG QD ORAL
     Route: 048
     Dates: start: 20060701
  6. PROVIGIL [Suspect]
     Indication: HYPERSENSITIVITY
     Dosage: 200 MG QD ORAL
     Route: 048
     Dates: start: 20060701
  7. CYMBALTA [Concomitant]

REACTIONS (2)
  - EXTRASYSTOLES [None]
  - VENTRICULAR EXTRASYSTOLES [None]
